FAERS Safety Report 5412133-1 (Version None)
Quarter: 2007Q3

REPORT INFORMATION
  Report Type: 
  Country: None (occurrence: None)
  Receive Date: 20070808
  Receipt Date: 20070727
  Transmission Date: 20080115
  Serious: Yes (Hospitalization)
  Sender: FDA-Public Use
  Company Number: DIB2007002

PATIENT
  Age: 48 Year
  Sex: Female

DRUGS (2)
  1. PHENOXYBENZAMINE [Suspect]
     Indication: PHAEOCHROMOCYTOMA
  2. LABETALOL HCL [Suspect]
     Indication: PHAEOCHROMOCYTOMA

REACTIONS (2)
  - CARDIAC ARREST [None]
  - UNRESPONSIVE TO STIMULI [None]
